FAERS Safety Report 7230965-4 (Version None)
Quarter: 2011Q1

REPORT INFORMATION
  Report Type: 
  Country: None (occurrence: None)
  Receive Date: 20110118
  Receipt Date: 20110110
  Transmission Date: 20110831
  Serious: Yes (Hospitalization)
  Sender: FDA-Public Use
  Company Number: BE-ROCHE-752257

PATIENT
  Sex: Female
  Weight: 62 kg

DRUGS (1)
  1. BEVACIZUMAB [Suspect]
     Dosage: DATE OF LAST DOSE PRIOR TO SAE: 28 DECEMBER 2010
     Route: 042
     Dates: start: 20101214

REACTIONS (1)
  - OEDEMA PERIPHERAL [None]
